FAERS Safety Report 4996863-1 (Version None)
Quarter: 2006Q2

REPORT INFORMATION
  Report Type: 
  Country: None (occurrence: None)
  Receive Date: 20060505
  Receipt Date: 20060427
  Transmission Date: 20061013
  Serious: Yes (Hospitalization, Other)
  Sender: FDA-Public Use
  Company Number: US-2006-002176

PATIENT
  Age: 57 Year
  Sex: Female
  Weight: 63.4 kg

DRUGS (26)
  1. BETASERON [Suspect]
     Indication: RELAPSING-REMITTING MULTIPLE SCLEROSIS
     Dosage: 8 MIU, EVERY 2D, SUBCUTANEOUS
     Route: 058
     Dates: start: 19950629, end: 20000315
  2. BETASERON [Suspect]
     Indication: RELAPSING-REMITTING MULTIPLE SCLEROSIS
     Dosage: 8 MIU, EVERY 2D, SUBCUTANEOUS
     Route: 058
     Dates: start: 20050816, end: 20060209
  3. ZYVOX [Suspect]
     Dosage: ORAL
     Route: 048
  4. IMMUNE GLOBULIN INTRAVENOUS (HUMAN) [Concomitant]
  5. PREVACID [Concomitant]
  6. BUPROPION [Concomitant]
  7. LEVOTHYROXINE SODIUM [Concomitant]
  8. SINGULAIR [Concomitant]
  9. POTASSIUM CHLORIDE [Concomitant]
  10. TRAZODONE HCL [Concomitant]
  11. ADVAIR DISKUS (SALMETEROL XINAFOATE, FLUTICASONE PROPIONATE) [Concomitant]
  12. PHENERGAN [Concomitant]
  13. XANAX [Concomitant]
  14. ATIVAN [Concomitant]
  15. KYTRIL [Concomitant]
  16. ZOFRAN [Concomitant]
  17. PROCRIT [Concomitant]
  18. MAGNESIUM [Concomitant]
  19. ALLEGRA [Concomitant]
  20. MULTIVITAMINS (PANTHENOL, RETINOL) [Concomitant]
  21. PEPTO-BISMOL (BISMUTH SUBSALICYLATE) [Concomitant]
  22. ADVIL [Concomitant]
  23. TYLENOL (CAPLET) [Concomitant]
  24. ADVIL COLD + SINUS (PSEUDOEPHEDRINE HYDROCHLORIDE) [Concomitant]
  25. WELLBUTRIN SR [Concomitant]
  26. NEXIUM [Concomitant]

REACTIONS (14)
  - CONDITION AGGRAVATED [None]
  - DIARRHOEA [None]
  - ENTEROCOCCAL INFECTION [None]
  - HEADACHE [None]
  - INFLUENZA LIKE ILLNESS [None]
  - INJECTION SITE REACTION [None]
  - KIDNEY INFECTION [None]
  - MULTIPLE SCLEROSIS [None]
  - NAUSEA [None]
  - PAIN [None]
  - PANCYTOPENIA [None]
  - PYREXIA [None]
  - URINARY TRACT INFECTION PSEUDOMONAL [None]
  - VOMITING [None]
